FAERS Safety Report 16394496 (Version 3)
Quarter: 2019Q2

REPORT INFORMATION
  Report Type: Spontaneous
  Country: FR (occurrence: FR)
  Receive Date: 20190605
  Receipt Date: 20190620
  Transmission Date: 20190711
  Serious: Yes (Life-Threatening, Hospitalization)
  Sender: FDA-Public Use
  Company Number: FR-MYLANLABS-2019M1052011

PATIENT
  Age: 74 Year
  Sex: Female

DRUGS (3)
  1. ACEBUTOLOL MYLAN 200 MG, COMPRIM? PELLICUL? [Suspect]
     Active Substance: ACEBUTOLOL
     Indication: TACHYCARDIA
  2. KARDEGIC [Concomitant]
     Active Substance: ASPIRIN DL-LYSINE
     Dosage: UNK
  3. ACEBUTOLOL MYLAN 200 MG, COMPRIM? PELLICUL? [Suspect]
     Active Substance: ACEBUTOLOL
     Indication: ARRHYTHMIA
     Dosage: 0.5 DOSAGE FORM, QD (HALF ON SATURDAY AND SUNDAY)
     Dates: start: 20190525

REACTIONS (2)
  - Cardiogenic shock [Unknown]
  - Wrong technique in product usage process [Unknown]

NARRATIVE: CASE EVENT DATE: 20190526
